FAERS Safety Report 4807468-7 (Version None)
Quarter: 2005Q4

REPORT INFORMATION
  Report Type: 
  Country: None (occurrence: None)
  Receive Date: 20051024
  Receipt Date: 20051013
  Transmission Date: 20060501
  Serious: Yes (Other)
  Sender: FDA-Public Use
  Company Number: GB-JNJFOC-20050406259

PATIENT
  Sex: Male

DRUGS (1)
  1. NIZORAL [Suspect]
     Route: 061
     Dates: start: 20050418

REACTIONS (3)
  - ERYTHEMA [None]
  - EYE SWELLING [None]
  - PRURITUS [None]
